FAERS Safety Report 21405826 (Version 1)
Quarter: 2022Q4

REPORT INFORMATION
  Report Type: Spontaneous
  Country: US (occurrence: US)
  Receive Date: 20221004
  Receipt Date: 20221004
  Transmission Date: 20230113
  Serious: No
  Sender: FDA-Public Use
  Company Number: US-JNJFOC-20220939513

PATIENT
  Age: 37 Year
  Sex: Female

DRUGS (2)
  1. TREMFYA [Suspect]
     Active Substance: GUSELKUMAB
     Indication: Psoriasis
     Route: 058
  2. TREMFYA [Suspect]
     Active Substance: GUSELKUMAB

REACTIONS (5)
  - Expired product administered [Unknown]
  - Burning sensation [Unknown]
  - Injection site reaction [Unknown]
  - Psoriasis [Unknown]
  - Injection site rash [Unknown]

NARRATIVE: CASE EVENT DATE: 20220918
